FAERS Safety Report 19153706 (Version 2)
Quarter: 2021Q2

REPORT INFORMATION
  Report Type: Spontaneous
  Country: US (occurrence: US)
  Receive Date: 20210419
  Receipt Date: 20210504
  Transmission Date: 20210717
  Serious: No
  Sender: FDA-Public Use
  Company Number: US-PFIZER INC-2021178856

PATIENT
  Age: 65 Year
  Sex: Female

DRUGS (5)
  1. GABAPENTIN. [Suspect]
     Active Substance: GABAPENTIN
     Dosage: 300 MG, 3X/DAY
  2. ATARAX [Suspect]
     Active Substance: HYDROXYZINE HYDROCHLORIDE
     Dosage: 25 MG
  3. KEFLEX [Suspect]
     Active Substance: CEPHALEXIN
     Dosage: 500 MG
  4. METHYLPREDNISOLONE. [Suspect]
     Active Substance: METHYLPREDNISOLONE
     Dosage: 4 MG
  5. BENADRYL ALLERGY RELIEF [ACRIVASTINE] [Suspect]
     Active Substance: ACRIVASTINE
     Indication: PRURITUS
     Dosage: 50 MG

REACTIONS (1)
  - Drug ineffective [Unknown]
